FAERS Safety Report 6079419 (Version 17)
Quarter: 2012Q4

REPORT INFORMATION
  Report Type: 
  Country: US (occurrence: US)
  Receive Date: 20060710
  Receipt Date: 20120911
  Transmission Date: 20130627
  Serious: Yes (Hospitalization, Other)
  Sender: FDA-Public Use
  Company Number: US-ROCHE-443598

PATIENT
  Age: 16 Year
  Sex: Male
  Weight: 73.5 kg

DRUGS (2)
  1. ACCUTANE [Suspect]
     Indication: ACNE
     Route: 048
     Dates: start: 19990416, end: 19990825
  2. AMBIEN [Suspect]
     Indication: PRODUCT USED FOR UNKNOWN INDICATION
     Route: 065

REACTIONS (24)
  - Colitis ulcerative [Not Recovered/Not Resolved]
  - Fistula [Unknown]
  - Suicidal ideation [Unknown]
  - Major depression [Unknown]
  - Anaemia [Unknown]
  - Violence-related symptom [Unknown]
  - Haemorrhage [Unknown]
  - Overdose [Unknown]
  - Small intestinal obstruction [Recovered/Resolved]
  - Gastrointestinal infection [Unknown]
  - Anxiety [Unknown]
  - Pelvic abscess [Unknown]
  - Inflammatory bowel disease [Unknown]
  - Crohn^s disease [Recovering/Resolving]
  - Lip dry [Recovered/Resolved]
  - Emotional distress [Unknown]
  - Tachycardia [Unknown]
  - Haematoma [Unknown]
  - Hypokalaemia [Unknown]
  - White blood cell disorder [Unknown]
  - Perirectal abscess [Unknown]
  - Drug dependence [Unknown]
  - Injury [Unknown]
  - Pleural effusion [Unknown]
